FAERS Safety Report 8015337-7 (Version None)
Quarter: 2011Q4

REPORT INFORMATION
  Report Type: 
  Country: None (occurrence: None)
  Receive Date: 20111223
  Receipt Date: 20111212
  Transmission Date: 20120403
  Serious: Yes (Hospitalization)
  Sender: FDA-Public Use
  Company Number: DSJ-2011-26614

PATIENT
  Age: 88 Year
  Sex: Male

DRUGS (3)
  1. BENICAR HCT [Suspect]
     Indication: HYPERTENSION
     Dosage: 20/12.5MG (1 IN 1 D), PER ORAL
     Route: 048
     Dates: end: 20100501
  2. MEDICINE FOR DIABETES (NAME UNKNOWN) [Concomitant]
  3. CALCIUM CARBONATE [Concomitant]

REACTIONS (2)
  - PROCEDURAL HYPOTENSION [None]
  - PERITONEAL DIALYSIS [None]
